FAERS Safety Report 7269627-6 (Version None)
Quarter: 2011Q1

REPORT INFORMATION
  Report Type: 
  Country: None (occurrence: None)
  Receive Date: 20110125
  Receipt Date: 20110111
  Transmission Date: 20110831
  Serious: Yes (Life-Threatening, Hospitalization)
  Sender: FDA-Public Use
  Company Number: 012509

PATIENT
  Age: 80 Year
  Sex: Male
  Weight: 54 kg

DRUGS (4)
  1. ASPIRIN [Suspect]
     Indication: PRODUCT USED FOR UNKNOWN INDICATION
     Dosage: ORAL
     Route: 048
  2. PIRACETAM (PIRACETAM) [Concomitant]
  3. TAMSULOSIN HCL [Concomitant]
  4. PLETAL [Suspect]
     Indication: INTERMITTENT CLAUDICATION
     Dosage: BLINDED, CODE NOT BROKEN, ORAL
     Route: 048
     Dates: start: 20101007, end: 20101128

REACTIONS (3)
  - UPPER GASTROINTESTINAL HAEMORRHAGE [None]
  - ACUTE MYOCARDIAL INFARCTION [None]
  - URINE OUTPUT DECREASED [None]
